FAERS Safety Report 4288374-6 (Version None)
Quarter: 2004Q1

REPORT INFORMATION
  Report Type: 
  Country: None (occurrence: None)
  Receive Date: 20040209
  Receipt Date: 20030923
  Transmission Date: 20041129
  Serious: No
  Sender: FDA-Public Use
  Company Number: US-GLAXOSMITHKLINE-A0427025A

PATIENT
  Age: 52 Year
  Sex: Male

DRUGS (3)
  1. PAXIL [Suspect]
     Dosage: 40MG PER DAY
     Route: 048
     Dates: end: 20030901
  2. PAROXETINE [Suspect]
     Route: 048
     Dates: start: 20030901
  3. ASPIRIN [Concomitant]

REACTIONS (1)
  - JOINT SWELLING [None]
